FAERS Safety Report 7203139-0 (Version None)
Quarter: 2010Q4

REPORT INFORMATION
  Report Type: 
  Country: None (occurrence: None)
  Receive Date: 20101229
  Receipt Date: 20101220
  Transmission Date: 20110411
  Serious: Yes (Other)
  Sender: FDA-Public Use
  Company Number: US-AMGEN-USASP2010010394

PATIENT

DRUGS (2)
  1. ENBREL [Suspect]
     Indication: PSORIATIC ARTHROPATHY
     Dates: start: 20060608
  2. HUMIRA [Concomitant]

REACTIONS (4)
  - DRUG INEFFECTIVE [None]
  - DRY EYE [None]
  - OEDEMA PERIPHERAL [None]
  - RENAL IMPAIRMENT [None]
